FAERS Safety Report 12683427 (Version 7)
Quarter: 2022Q1

REPORT INFORMATION
  Report Type: Spontaneous
  Country: US (occurrence: US)
  Receive Date: 20160825
  Receipt Date: 20220204
  Transmission Date: 20220423
  Serious: Yes (Other)
  Sender: FDA-Public Use
  Company Number: US-PFIZER INC-2016400508

PATIENT
  Age: 74 Year
  Sex: Female
  Weight: 58.957 kg

DRUGS (8)
  1. XANAX [Suspect]
     Active Substance: ALPRAZOLAM
     Indication: Anxiety
     Dosage: 2 DF, DAILY
  2. XANAX [Suspect]
     Active Substance: ALPRAZOLAM
     Dosage: UNK, DAILY (HALF OF THE 0.25)
  3. XANAX [Suspect]
     Active Substance: ALPRAZOLAM
     Dosage: 0.25 MG
  4. XANAX [Suspect]
     Active Substance: ALPRAZOLAM
     Dosage: (HALF OF THAT IN THE MORNING AND HALF OF IT IN THE AFTERNOON )
  5. XANAX [Suspect]
     Active Substance: ALPRAZOLAM
     Dosage: 0.5 MG (2 PILLS), DAILY
     Dates: start: 2017
  6. XANAX [Suspect]
     Active Substance: ALPRAZOLAM
     Dosage: 0.25 MG, 2X/DAY (ONE TABLET BY MOUTH TWICE PER DAY)
     Route: 048
  7. BENICAR [Concomitant]
     Active Substance: OLMESARTAN MEDOXOMIL
     Indication: Blood pressure abnormal
     Dosage: UNK
  8. ATENOLOL [Concomitant]
     Active Substance: ATENOLOL
     Indication: Blood pressure abnormal
     Dosage: 12.5 MG (HALF OF 25 MG), UNK

REACTIONS (21)
  - Blood pressure increased [Unknown]
  - Drug ineffective [Unknown]
  - Intentional product use issue [Unknown]
  - Expired product administered [Unknown]
  - Dizziness [Unknown]
  - Paraesthesia [Unknown]
  - Hyperhidrosis [Unknown]
  - Abdominal pain upper [Unknown]
  - Malaise [Unknown]
  - Nasal congestion [Unknown]
  - Secretion discharge [Unknown]
  - Cold sweat [Unknown]
  - Back pain [Unknown]
  - Therapeutic response unexpected [Unknown]
  - Parosmia [Unknown]
  - Product odour abnormal [Unknown]
  - Feeling abnormal [Unknown]
  - Headache [Unknown]
  - Heart rate increased [Unknown]
  - Chest discomfort [Unknown]
  - Blood glucose increased [Unknown]

NARRATIVE: CASE EVENT DATE: 20190601
